FAERS Safety Report 9471080 (Version 2)
Quarter: 2013Q3

REPORT INFORMATION
  Report Type: Spontaneous
  Country: US (occurrence: US)
  Receive Date: 20130822
  Receipt Date: 20130822
  Transmission Date: 20140515
  Serious: Yes (Hospitalization, Other)
  Sender: FDA-Public Use
  Company Number: US-JNJFOC-20130612840

PATIENT
  Age: 68 Year
  Sex: Male
  Weight: 95.71 kg

DRUGS (12)
  1. XARELTO [Suspect]
     Indication: KNEE ARTHROPLASTY
     Dosage: DISCONTINUED EITHER ON THE 7TH OR 8TH OF JUNE.
     Route: 048
     Dates: start: 20130603, end: 20130607
  2. XARELTO [Suspect]
     Indication: THROMBOSIS PROPHYLAXIS
     Dosage: DISCONTINUED EITHER ON THE 7TH OR 8TH OF JUNE.
     Route: 048
     Dates: start: 20130603, end: 20130607
  3. BABY ASPIRIN [Suspect]
     Indication: ANTICOAGULANT THERAPY
     Route: 065
  4. ACTOS [Concomitant]
     Route: 048
  5. LANTUS [Concomitant]
     Route: 065
  6. JANUVIA [Concomitant]
     Route: 048
  7. SIMVASTATIN [Concomitant]
     Route: 048
  8. LISINOPRIL [Concomitant]
     Route: 048
  9. METFORMIN HYDROCHLORIDE [Concomitant]
     Route: 048
  10. NORCO [Concomitant]
     Route: 065
  11. GLUCOSAMINE [Concomitant]
     Route: 048
  12. FINASTERIDE [Concomitant]
     Route: 048

REACTIONS (9)
  - Haematuria [Recovered/Resolved]
  - Gingival bleeding [Recovered/Resolved]
  - Wound haemorrhage [Recovered/Resolved]
  - Contusion [Recovered/Resolved]
  - Joint injury [Recovered/Resolved]
  - Infection [Recovered/Resolved]
  - Ecchymosis [Recovered/Resolved]
  - Arthralgia [Recovered/Resolved]
  - Joint swelling [Recovered/Resolved]
